FAERS Safety Report 8812303 (Version 1)
Quarter: 2012Q4

REPORT INFORMATION
  Report Type: Report from Study
  Country: US (occurrence: US)
  Receive Date: 20120927
  Receipt Date: 20120927
  Transmission Date: 20130627
  Serious: Yes (Other)
  Sender: FDA-Public Use
  Company Number: US-ABBOTT-12P-163-0983898-00

PATIENT
  Sex: Female
  Weight: 77.18 kg

DRUGS (6)
  1. HUMIRA PRE-FILLED SYRINGE [Suspect]
     Indication: RHEUMATOID ARTHRITIS
     Dosage: taken irregularly: weekly, every other week, every four to six weeks
     Route: 058
     Dates: start: 2006
  2. HUMIRA PRE-FILLED SYRINGE [Suspect]
     Route: 058
  3. HUMIRA PRE-FILLED SYRINGE [Suspect]
  4. HUMIRA PRE-FILLED SYRINGE [Suspect]
  5. HUMIRA PRE-FILLED SYRINGE [Suspect]
     Route: 058
     Dates: start: 20120820
  6. PREDNISONE [Suspect]
     Indication: RHEUMATOID ARTHRITIS

REACTIONS (7)
  - Foot deformity [Recovered/Resolved]
  - Rheumatoid arthritis [Unknown]
  - Meniscus injury [Recovered/Resolved]
  - Arthralgia [Recovered/Resolved]
  - Chondropathy [Not Recovered/Not Resolved]
  - Weight increased [Not Recovered/Not Resolved]
  - Blood glucose increased [Not Recovered/Not Resolved]
